FAERS Safety Report 5900671-4 (Version None)
Quarter: 2008Q3

REPORT INFORMATION
  Report Type: 
  Country: None (occurrence: None)
  Receive Date: 20080926
  Receipt Date: 20080912
  Transmission Date: 20090109
  Serious: Yes (Death, Hospitalization)
  Sender: FDA-Public Use
  Company Number: CH-GENENTECH-266541

PATIENT
  Sex: Male

DRUGS (1)
  1. AVASTIN [Suspect]
     Indication: NON-SMALL CELL LUNG CANCER
     Dosage: 630 MG, Q3W
     Route: 042
     Dates: start: 20080207, end: 20080808

REACTIONS (2)
  - CYST RUPTURE [None]
  - PANCREATITIS [None]
